FAERS Safety Report 7384675-3 (Version None)
Quarter: 2011Q1

REPORT INFORMATION
  Report Type: 
  Country: None (occurrence: None)
  Receive Date: 20110330
  Receipt Date: 20110317
  Transmission Date: 20110831
  Serious: Yes (Other)
  Sender: FDA-Public Use
  Company Number: PHHY2011DE21057

PATIENT
  Age: 63 Year
  Sex: Male

DRUGS (3)
  1. CALCIUM [Concomitant]
  2. ZOMETA [Suspect]
     Indication: RENAL CANCER
     Dosage: 4 MG, EVERY 3-4 WEEKS
     Route: 042
     Dates: start: 20090901
  3. VITAMIN D [Concomitant]

REACTIONS (2)
  - BONE DISORDER [None]
  - OSTEONECROSIS OF JAW [None]
